FAERS Safety Report 16145421 (Version 1)
Quarter: 2019Q2

REPORT INFORMATION
  Report Type: Spontaneous
  Country: GB (occurrence: GB)
  Receive Date: 20190402
  Receipt Date: 20190402
  Transmission Date: 20190711
  Serious: Yes (Other)
  Sender: FDA-Public Use
  Company Number: GB-ESPERO PHARMACEUTICALS-ESP201903-000012

PATIENT
  Age: 79 Year
  Sex: Female
  Weight: 52 kg

DRUGS (19)
  1. FLUCLOXACILLIN [Concomitant]
     Active Substance: FLUCLOXACILLIN
     Dates: start: 20190225, end: 20190304
  2. NYSTATIN. [Concomitant]
     Active Substance: NYSTATIN
     Dates: start: 20190130, end: 20190204
  3. VENTOLIN [Concomitant]
     Active Substance: ALBUTEROL SULFATE
     Dates: start: 20180509
  4. FUROSEMIDE. [Concomitant]
     Active Substance: FUROSEMIDE
     Dosage: EACH MORNING
     Dates: start: 20181001
  5. NOVORAPID [Concomitant]
     Active Substance: INSULIN ASPART
     Dosage: UNITS BEFORE MEALS
     Dates: start: 20180509
  6. CLOPIDOGREL [Concomitant]
     Active Substance: CLOPIDOGREL BISULFATE
     Dosage: UNTIL 30-4-2019
     Dates: start: 20190128
  7. AMLODIPINE [Concomitant]
     Active Substance: AMLODIPINE BESYLATE
     Dates: start: 20190128
  8. NITROGLYCERIN. [Suspect]
     Active Substance: NITROGLYCERIN
     Dosage: 400 MICROGRAM 1 TOTAL (ONE PUFF)
     Route: 060
     Dates: start: 20190128
  9. ACETYLSALICYLIC ACID [Concomitant]
     Active Substance: ASPIRIN
     Dates: start: 20180509
  10. ANORO ELLIPTA [Concomitant]
     Active Substance: UMECLIDINIUM BROMIDE\VILANTEROL TRIFENATATE
     Dates: start: 20180509
  11. OMEPRAZOLE. [Concomitant]
     Active Substance: OMEPRAZOLE
     Dates: start: 20190128
  12. CIPROFLOXACIN. [Concomitant]
     Active Substance: CIPROFLOXACIN
     Dates: start: 20180521
  13. SALBUTAMOL [Concomitant]
     Active Substance: ALBUTEROL
     Dates: start: 20180509
  14. LEVEMIR [Concomitant]
     Active Substance: INSULIN DETEMIR
     Dosage: UNITS TWICE DAILY
     Dates: start: 20180509
  15. RAMIPRIL. [Concomitant]
     Active Substance: RAMIPRIL
     Dates: start: 20190128
  16. HYDROCORTISONE. [Concomitant]
     Active Substance: HYDROCORTISONE
     Dosage: SUCK 4 TIMES/DAY
     Dates: start: 20181231, end: 20190105
  17. ISOSORBIDE MONONITRATE. [Concomitant]
     Active Substance: ISOSORBIDE MONONITRATE
     Dates: start: 20180509
  18. ATORVASTATIN [Concomitant]
     Active Substance: ATORVASTATIN
     Dates: start: 20180509
  19. VOLUMATIC [Concomitant]
     Dosage: USE WITH INHALERS
     Dates: start: 20170418

REACTIONS (2)
  - Vomiting [Recovered/Resolved]
  - Catatonia [Recovered/Resolved]
